FAERS Safety Report 24396312 (Version 2)
Quarter: 2024Q4

REPORT INFORMATION
  Report Type: Spontaneous
  Country: US (occurrence: US)
  Receive Date: 20241004
  Receipt Date: 20241008
  Transmission Date: 20250114
  Serious: Yes (Life-Threatening, Hospitalization, Other)
  Sender: PFIZER
  Company Number: US-MLMSERVICE-20240923-PI201950-00271-1

PATIENT
  Age: 74 Year
  Sex: Female

DRUGS (2)
  1. METHOTREXATE SODIUM [Suspect]
     Active Substance: METHOTREXATE SODIUM
     Indication: Large granular lymphocytosis
     Dosage: UNK
  2. PREDNISONE [Suspect]
     Active Substance: PREDNISONE
     Indication: Lymphocytic leukaemia
     Dosage: LOW-DOSE

REACTIONS (8)
  - Encephalopathy [Recovering/Resolving]
  - Lung infiltration [Recovering/Resolving]
  - Acute kidney injury [Recovering/Resolving]
  - Pneumocystis jirovecii pneumonia [Recovering/Resolving]
  - Hyperuricaemia [Recovering/Resolving]
  - Hypercalcaemia [Recovered/Resolved]
  - Blood 1,25-dihydroxycholecalciferol increased [Recovering/Resolving]
  - Off label use [Unknown]
